FAERS Safety Report 9752263 (Version 1)
Quarter: 2013Q4

REPORT INFORMATION
  Report Type: Spontaneous
  Country: US (occurrence: None)
  Receive Date: 20131211
  Receipt Date: 20131211
  Transmission Date: 20140711
  Serious: Yes (Other)
  Sender: FDA-Public Use
  Company Number: None

PATIENT
  Age: 53 Year
  Sex: Female
  Weight: 63.05 kg

DRUGS (1)
  1. METHYLPHENIDATE ER [Suspect]
     Indication: ATTENTION DEFICIT/HYPERACTIVITY DISORDER
     Dosage: 2 TABLETS ONCE DAILY TAKEN BY MOUTH
     Route: 048
     Dates: start: 20131114, end: 20131207

REACTIONS (10)
  - Palpitations [None]
  - Vision blurred [None]
  - Headache [None]
  - Tremor [None]
  - Anxiety [None]
  - Abdominal pain upper [None]
  - Drug effect decreased [None]
  - Activities of daily living impaired [None]
  - Product quality issue [None]
  - Product substitution issue [None]
